FAERS Safety Report 20582508 (Version 1)
Quarter: 2022Q1

REPORT INFORMATION
  Report Type: Spontaneous
  Country: US (occurrence: None)
  Receive Date: 20220311
  Receipt Date: 20220311
  Transmission Date: 20220424
  Serious: No
  Sender: FDA-Public Use
  Company Number: None

PATIENT
  Age: 66 Year
  Sex: Female
  Weight: 83.6 kg

DRUGS (1)
  1. AZACITIDINE [Suspect]
     Active Substance: AZACITIDINE
     Dates: start: 20210511, end: 20210517

REACTIONS (3)
  - Neutrophil count decreased [None]
  - Platelet count decreased [None]
  - Neutropenia [None]

NARRATIVE: CASE EVENT DATE: 20210522
